FAERS Safety Report 4391219-7 (Version None)
Quarter: 2004Q2

REPORT INFORMATION
  Report Type: 
  Country: None (occurrence: None)
  Receive Date: 20040621
  Receipt Date: 20040319
  Transmission Date: 20050107
  Serious: Yes (Other)
  Sender: FDA-Public Use
  Company Number: USA-2002-0000683

PATIENT
  Age: 42 Year
  Sex: Female

DRUGS (5)
  1. OXYCONTIN [Suspect]
     Indication: PAIN
     Dosage: UNK MG, ORAL
     Route: 048
     Dates: start: 19980626
  2. RELAFEN [Concomitant]
  3. VALIUM [Concomitant]
  4. LITHIUM [Concomitant]
  5. TRIAVIL [Concomitant]

REACTIONS (5)
  - CONDITION AGGRAVATED [None]
  - DRUG DEPENDENCE [None]
  - DRUG WITHDRAWAL SYNDROME [None]
  - FATIGUE [None]
  - INSOMNIA [None]
